FAERS Safety Report 6410839-9 (Version None)
Quarter: 2009Q4

REPORT INFORMATION
  Report Type: 
  Country: None (occurrence: None)
  Receive Date: 20091022
  Receipt Date: 20091007
  Transmission Date: 20100525
  Serious: Yes (Other)
  Sender: FDA-Public Use
  Company Number: BR-GENENTECH-292643

PATIENT
  Age: 32 Year
  Sex: Male
  Weight: 70 kg

DRUGS (2)
  1. XOLAIR [Suspect]
     Indication: ASTHMA
     Dosage: 150 MG, Q15D
     Route: 058
  2. FORASEQ (BRAZIL) [Suspect]
     Indication: ASTHMA
     Dosage: 1 DF, BID
     Route: 055

REACTIONS (2)
  - DRUG INEFFECTIVE [None]
  - DYSPNOEA [None]
